FAERS Safety Report 6983087-1 (Version None)
Quarter: 2010Q3

REPORT INFORMATION
  Report Type: 
  Country: None (occurrence: None)
  Receive Date: 20100914
  Receipt Date: 20100615
  Transmission Date: 20110219
  Serious: No
  Sender: FDA-Public Use
  Company Number: US-PFIZER INC-2010075554

PATIENT
  Sex: Male
  Weight: 97 kg

DRUGS (3)
  1. LYRICA [Suspect]
     Indication: NEURALGIA
     Dosage: 75 MG, 2X/DAY
     Route: 048
     Dates: start: 20050101
  2. IBUPROFEN [Concomitant]
     Indication: PAIN
     Dosage: UNK
  3. DONNATAL [Concomitant]
     Indication: GASTRIC DISORDER
     Dosage: UNK

REACTIONS (4)
  - FEELING ABNORMAL [None]
  - MOBILITY DECREASED [None]
  - MYALGIA [None]
  - PAIN [None]
